FAERS Safety Report 9190065 (Version 1)
Quarter: 2013Q1

REPORT INFORMATION
  Report Type: Spontaneous
  Country: IT (occurrence: None)
  Receive Date: 20130322
  Receipt Date: 20130322
  Transmission Date: 20140127
  Serious: Yes (Other)
  Sender: FDA-Public Use
  Company Number: IT-ALKEM-000023

PATIENT
  Age: 59 Year
  Sex: Female

DRUGS (1)
  1. QUETIAPINE (QUETIAPINE) (QUETIAPINE) [Suspect]
     Indication: INSOMNIA

REACTIONS (11)
  - Somnambulism [None]
  - Somnolence [None]
  - Fatigue [None]
  - Mood altered [None]
  - Amylase increased [None]
  - Lipase increased [None]
  - Akathisia [None]
  - Dissociation [None]
  - Mouth haemorrhage [None]
  - Face injury [None]
  - Joint injury [None]
